APPROVED DRUG PRODUCT: NEXLIZET
Active Ingredient: BEMPEDOIC ACID; EZETIMIBE
Strength: 180MG;10MG
Dosage Form/Route: TABLET;ORAL
Application: N211617 | Product #001
Applicant: ESPERION THERAPEUTICS INC
Approved: Feb 26, 2020 | RLD: Yes | RS: Yes | Type: RX

PATENTS:
Patent 11744816 | Expires: Mar 14, 2036
Patent 10912751 | Expires: Mar 14, 2036
Patent 11926584 | Expires: Jun 19, 2040
Patent 12404227 | Expires: Jun 19, 2040
Patent 11744816 | Expires: Mar 14, 2036
Patent 10912751 | Expires: Mar 14, 2036
Patent 11613511 | Expires: Jun 19, 2040
Patent 11760714 | Expires: Jun 19, 2040
Patent 7335799 | Expires: Dec 3, 2030
Patent 12398087 | Expires: Jun 19, 2040

EXCLUSIVITY:
Code: I-943 | Date: Mar 22, 2027
Code: I-945 | Date: Mar 22, 2027